FAERS Safety Report 20738078 (Version 1)
Quarter: 2022Q2

REPORT INFORMATION
  Report Type: Report from Study
  Country: US (occurrence: US)
  Receive Date: 20220422
  Receipt Date: 20220422
  Transmission Date: 20220721
  Serious: Yes (Hospitalization, Other)
  Sender: FDA-Public Use
  Company Number: US-PHARMACOVIGILANCE-US-KAD-22-00381

PATIENT
  Age: 61 Year
  Sex: Female

DRUGS (1)
  1. BELUMOSUDIL [Suspect]
     Active Substance: BELUMOSUDIL
     Indication: Product used for unknown indication
     Dosage: 200 MILLIGRAM, QD
     Route: 065
     Dates: start: 20220113

REACTIONS (4)
  - Atrial fibrillation [Unknown]
  - Ulcer [Unknown]
  - Pneumonia [Unknown]
  - Staphylococcal infection [Unknown]

NARRATIVE: CASE EVENT DATE: 20220401
